FAERS Safety Report 5615078-7 (Version None)
Quarter: 2008Q1

REPORT INFORMATION
  Report Type: 
  Country: None (occurrence: None)
  Receive Date: 20080206
  Receipt Date: 20061214
  Transmission Date: 20080703
  Serious: Yes (Other)
  Sender: FDA-Public Use
  Company Number: A0631625A

PATIENT

DRUGS (1)
  1. ARIXTRA [Suspect]
     Dosage: 2.5MCG UNKNOWN
     Route: 058
     Dates: start: 20060101

REACTIONS (1)
  - THROMBOCYTOPENIA [None]
